FAERS Safety Report 11159513 (Version 3)
Quarter: 2015Q3

REPORT INFORMATION
  Report Type: Spontaneous
  Country: US (occurrence: US)
  Receive Date: 20150603
  Receipt Date: 20150706
  Transmission Date: 20151125
  Serious: No
  Sender: FDA-Public Use
  Company Number: US-PFIZER INC-2015183220

PATIENT
  Age: 53 Year
  Sex: Female
  Weight: 52 kg

DRUGS (4)
  1. PANTOPRAZOLE [Suspect]
     Active Substance: PANTOPRAZOLE SODIUM
     Indication: GASTROOESOPHAGEAL REFLUX DISEASE
     Dosage: 40 MG, 1X/DAY
     Route: 048
     Dates: start: 2010
  2. SUSTAIN [Concomitant]
     Indication: DRY EYE
  3. ALPRAZOLAM. [Concomitant]
     Active Substance: ALPRAZOLAM
     Indication: ANXIETY
     Dosage: 0.5 MG, UNK
  4. MILK OF MAGNESIA [Concomitant]
     Active Substance: MAGNESIUM HYDROXIDE
     Dosage: UNK, DAILY

REACTIONS (14)
  - Peripheral swelling [Unknown]
  - Social problem [Unknown]
  - Asthenia [Unknown]
  - Speech disorder [Unknown]
  - Dyspnoea [Unknown]
  - Tremor [Unknown]
  - Anxiety disorder [Unknown]
  - Gait disturbance [Unknown]
  - Limb discomfort [Unknown]
  - Weight decreased [Unknown]
  - Palpitations [Unknown]
  - Urine output increased [Unknown]
  - Chest discomfort [Unknown]
  - Joint swelling [Unknown]
